FAERS Safety Report 9349794 (Version 1)
Quarter: 2013Q2

REPORT INFORMATION
  Report Type: Spontaneous
  Country: FR (occurrence: None)
  Receive Date: 20130611
  Receipt Date: 20130611
  Transmission Date: 20140414
  Serious: Yes (Death, Hospitalization)
  Sender: FDA-Public Use
  Company Number: 2013000123

PATIENT
  Age: 88 Year
  Sex: Female
  Weight: 49 kg

DRUGS (7)
  1. ACEON (PERINDOPRIL ERBUMINE) TABLET [Suspect]
     Indication: PRODUCT USED FOR UNKNOWN INDICATION
  2. STROMECTOL [Suspect]
     Indication: ACARODERMATITIS
     Dosage: 3 TABLETS
     Dates: start: 20130116, end: 20130116
  3. LASILIX [Suspect]
  4. ALDACTONE [Suspect]
  5. ISOPTINE [Concomitant]
  6. KARDEGIC [Concomitant]
  7. SPREGAL [Concomitant]

REACTIONS (3)
  - Renal failure acute [None]
  - Pulmonary embolism [None]
  - Acarodermatitis [None]
